FAERS Safety Report 6304051-1 (Version None)
Quarter: 2009Q3

REPORT INFORMATION
  Report Type: 
  Country: None (occurrence: None)
  Receive Date: 20090810
  Receipt Date: 20090810
  Transmission Date: 20100115
  Serious: No
  Sender: FDA-Public Use
  Company Number: None

PATIENT
  Age: 58 Year
  Sex: Male
  Weight: 61.6892 kg

DRUGS (3)
  1. HUMIRA [Suspect]
     Indication: RHEUMATOID ARTHRITIS
     Dosage: SHOT BI-MONTHLY
     Dates: start: 20050204, end: 20071210
  2. ENBREL [Concomitant]
  3. REMICADE [Concomitant]

REACTIONS (1)
  - NON-HODGKIN'S LYMPHOMA [None]
